FAERS Safety Report 7708408-3 (Version None)
Quarter: 2011Q3

REPORT INFORMATION
  Report Type: 
  Country: None (occurrence: None)
  Receive Date: 20110825
  Receipt Date: 20110816
  Transmission Date: 20111222
  Serious: Yes (Hospitalization, Other)
  Sender: FDA-Public Use
  Company Number: CA-ELI_LILLY_AND_COMPANY-CA201108004976

PATIENT
  Sex: Female

DRUGS (9)
  1. CELEXA [Concomitant]
  2. CLONAZEPAM [Concomitant]
  3. LITHIUM CARBONATE [Concomitant]
  4. RISPERDAL [Concomitant]
  5. ZYPREXA [Suspect]
     Dosage: 5 MG, EACH EVENING
  6. SEROQUEL [Concomitant]
  7. PROPRANOLOL [Concomitant]
     Indication: PANIC ATTACK
  8. ZYPREXA [Suspect]
     Dosage: 12.5 MG, QD
  9. ZYPREXA [Suspect]
     Indication: BIPOLAR I DISORDER
     Dosage: 2.5 MG, EACH EVENING
     Dates: start: 20040511, end: 20070306

REACTIONS (9)
  - OXYGEN SATURATION DECREASED [None]
  - BLOOD TRIGLYCERIDES INCREASED [None]
  - ATELECTASIS [None]
  - BLOOD CHOLESTEROL INCREASED [None]
  - HYPERGLYCAEMIA [None]
  - PARAESTHESIA [None]
  - PALPITATIONS [None]
  - WEIGHT INCREASED [None]
  - MITRAL VALVE INCOMPETENCE [None]
